FAERS Safety Report 16601387 (Version 2)
Quarter: 2022Q1

REPORT INFORMATION
  Report Type: Spontaneous
  Country: ES (occurrence: ES)
  Receive Date: 20190719
  Receipt Date: 20220309
  Transmission Date: 20220423
  Serious: Yes (Other)
  Sender: FDA-Public Use
  Company Number: PHHY2019ES164455

PATIENT
  Age: 66 Year
  Sex: Male

DRUGS (6)
  1. BUPRENORPHINE [Suspect]
     Active Substance: BUPRENORPHINE
     Indication: Bone pain
     Dosage: UNK
     Route: 065
     Dates: start: 201602
  2. BUPRENORPHINE [Suspect]
     Active Substance: BUPRENORPHINE
     Dosage: UNK
     Route: 065
     Dates: start: 201701
  3. PREGABALIN [Suspect]
     Active Substance: PREGABALIN
     Indication: Bone pain
     Dosage: 150 MG, Q12H
     Route: 065
     Dates: start: 201701
  4. NALOXONE HYDROCHLORIDE\OXYCODONE HYDROCHLORIDE [Suspect]
     Active Substance: NALOXONE HYDROCHLORIDE\OXYCODONE HYDROCHLORIDE
     Indication: Bone pain
     Dosage: 15 MG, Q12H (10 MG + 5 MG EVERY 12 HOURS)
     Route: 065
     Dates: start: 201701
  5. IBUPROFEN [Suspect]
     Active Substance: IBUPROFEN
     Indication: Bone pain
     Dosage: 600 MG, Q12H
     Route: 065
     Dates: start: 201701
  6. MORPHINE SULFATE [Suspect]
     Active Substance: MORPHINE SULFATE
     Indication: Breakthrough pain
     Dosage: 10 MG, UNK (4-5 MORPHINE RESCUES)
     Route: 065
     Dates: start: 201701

REACTIONS (3)
  - Neurotoxicity [Recovering/Resolving]
  - Disorientation [Recovering/Resolving]
  - Somnolence [Recovering/Resolving]

NARRATIVE: CASE EVENT DATE: 20170101
